FAERS Safety Report 18492293 (Version 4)
Quarter: 2021Q2

REPORT INFORMATION
  Report Type: Spontaneous
  Country: CN (occurrence: CN)
  Receive Date: 20201111
  Receipt Date: 20210519
  Transmission Date: 20210717
  Serious: Yes (Death, Hospitalization)
  Sender: FDA-Public Use
  Company Number: CN-ELI_LILLY_AND_COMPANY-CN202010003754

PATIENT
  Age: 85 Year
  Sex: Female

DRUGS (1)
  1. TALTZ [Suspect]
     Active Substance: IXEKIZUMAB
     Indication: PSORIASIS
     Dosage: UNK, UNKNOWN
     Route: 058
     Dates: start: 20200828

REACTIONS (11)
  - Pneumonia [Fatal]
  - Parotid gland enlargement [Unknown]
  - Dermatitis exfoliative generalised [Unknown]
  - Thyroid mass [Unknown]
  - Cystic lung disease [Unknown]
  - Arteriosclerosis [Unknown]
  - Hyperkalaemia [Unknown]
  - Acute kidney injury [Unknown]
  - Blood glucose increased [Unknown]
  - Hyperlipidaemia [Unknown]
  - Pulmonary mass [Unknown]

NARRATIVE: CASE EVENT DATE: 20200930
